FAERS Safety Report 12509067 (Version 1)
Quarter: 2016Q2

REPORT INFORMATION
  Report Type: Spontaneous
  Country: US (occurrence: US)
  Receive Date: 20160629
  Receipt Date: 20160629
  Transmission Date: 20160815
  Serious: No
  Sender: FDA-Public Use
  Company Number: US-MAYNE PHARMA-2016MYN000099

PATIENT
  Sex: Female

DRUGS (1)
  1. BROMFENAC OPHTHALMIC SOLUTION, 0.09% [Suspect]
     Active Substance: BROMFENAC SODIUM
     Indication: PRODUCT USED FOR UNKNOWN INDICATION
     Dosage: UNK
     Route: 047
     Dates: start: 20160116, end: 2016

REACTIONS (1)
  - Eye irritation [Not Recovered/Not Resolved]
